FAERS Safety Report 9815479 (Version 1)
Quarter: 2014Q1

REPORT INFORMATION
  Report Type: Spontaneous
  Country: US (occurrence: US)
  Receive Date: 20140114
  Receipt Date: 20140114
  Transmission Date: 20141002
  Serious: No
  Sender: FDA-Public Use
  Company Number: US-PFIZER INC-2014010242

PATIENT
  Sex: Female
  Weight: 93 kg

DRUGS (4)
  1. CELEBREX [Suspect]
     Indication: FIBROMYALGIA
     Dosage: 100 MG, 2X/DAY
  2. CELEBREX [Suspect]
     Dosage: 200 MG, 2X/DAY
  3. TRAZODONE [Concomitant]
     Dosage: 100 MG, 1X/DAY
  4. LYRICA [Concomitant]
     Dosage: 75 MG, 2X/DAY

REACTIONS (2)
  - Product taste abnormal [Not Recovered/Not Resolved]
  - Dysgeusia [Not Recovered/Not Resolved]
